FAERS Safety Report 9790895 (Version 1)
Quarter: 2013Q4

REPORT INFORMATION
  Report Type: Spontaneous
  Country: GB (occurrence: GB)
  Receive Date: 20131231
  Receipt Date: 20131231
  Transmission Date: 20140711
  Serious: Yes (Hospitalization)
  Sender: FDA-Public Use
  Company Number: GB-PFIZER INC-2013373302

PATIENT
  Age: 83 Year
  Sex: 0

DRUGS (12)
  1. OMEPRAZOLE [Suspect]
     Indication: PRODUCT USED FOR UNKNOWN INDICATION
     Dosage: 40 MG, 2X/DAY
     Route: 048
  2. CEFUROXIME [Suspect]
     Indication: ANTIBIOTIC PROPHYLAXIS
     Dosage: UNK, SINGLE
     Route: 042
     Dates: start: 20111121, end: 20111121
  3. CEFUROXIME [Suspect]
     Indication: COLECTOMY
  4. METRONIDAZOLE [Suspect]
     Indication: ANTIBIOTIC PROPHYLAXIS
     Dosage: (500 MG), SINGLE
     Route: 042
     Dates: start: 20111121, end: 20111121
  5. METRONIDAZOLE [Suspect]
     Indication: COLECTOMY
  6. ALENDRONIC ACID [Concomitant]
     Dosage: 70 MG, WEEKLY
     Route: 048
  7. ALFACALCIDOL [Concomitant]
     Dosage: 250 NG, 1X/DAY
     Route: 048
  8. CO-CODAMOL [Concomitant]
     Dosage: UNK, AS NEEDED
     Route: 048
  9. DIPYRIDAMOLE [Concomitant]
     Dosage: 200 MG, 2X/DAY
     Route: 048
  10. SENNA [Concomitant]
     Dosage: 2 DF, 1X/DAY
     Route: 048
  11. SIMVASTATIN [Concomitant]
     Dosage: 40 MG, 1X/DAY
     Route: 048
  12. TAZOCIN [Concomitant]
     Indication: NOSOCOMIAL INFECTION
     Dosage: 4.5 MG, 3X/DAY
     Route: 042
     Dates: start: 20111003, end: 20111101

REACTIONS (1)
  - Clostridium difficile infection [Recovered/Resolved]
